FAERS Safety Report 5098259-3 (Version None)
Quarter: 2006Q3

REPORT INFORMATION
  Report Type: 
  Country: None (occurrence: None)
  Receive Date: 20060906
  Receipt Date: 20060616
  Transmission Date: 20061208
  Serious: No
  Sender: FDA-Public Use
  Company Number: US-GLAXOSMITHKLINE-A0609523A

PATIENT
  Age: 81 Year
  Sex: Female

DRUGS (9)
  1. REQUIP [Suspect]
     Indication: RESTLESS LEGS SYNDROME
     Route: 048
  2. EFFEXOR [Concomitant]
  3. ATENOLOL [Concomitant]
  4. LISINOPRIL [Concomitant]
  5. LASIX [Concomitant]
  6. LIPITOR [Concomitant]
  7. NEURONTIN [Concomitant]
  8. ASPIRIN [Concomitant]
  9. ACIPHEX [Concomitant]

REACTIONS (1)
  - DRUG INEFFECTIVE [None]
